FAERS Safety Report 4310888-0 (Version None)
Quarter: 2004Q1

REPORT INFORMATION
  Report Type: 
  Country: None (occurrence: None)
  Receive Date: 20040302
  Receipt Date: 20040218
  Transmission Date: 20041129
  Serious: Yes (Hospitalization)
  Sender: FDA-Public Use
  Company Number: 2004011115

PATIENT
  Age: 69 Year
  Sex: Female

DRUGS (2)
  1. ZOLOFT [Suspect]
     Indication: DEPRESSION
     Dosage: 100 MG (DAILY)
  2. GALANTAMINE(GALANTAMINE) [Concomitant]

REACTIONS (1)
  - EPILEPSY [None]
